FAERS Safety Report 9167674 (Version 1)
Quarter: 2013Q1

REPORT INFORMATION
  Report Type: Spontaneous
  Country: US (occurrence: US)
  Receive Date: 20130318
  Receipt Date: 20130318
  Transmission Date: 20140127
  Serious: No
  Sender: FDA-Public Use
  Company Number: US-PFIZER INC-2013084872

PATIENT
  Age: 51 Year
  Sex: Male
  Weight: 82.54 kg

DRUGS (4)
  1. RAPAMUNE [Suspect]
     Indication: KIDNEY TRANSPLANT REJECTION
     Dosage: 2 MG, 1X/DAY (IN MORNING)
     Dates: start: 2009, end: 20130311
  2. MYFORTIC [Concomitant]
     Indication: KIDNEY TRANSPLANT REJECTION
     Dosage: 180 MG, 1X/DAY
  3. MICARDIS [Concomitant]
     Indication: HYPERTENSION
     Dosage: 20 MG, 1X/DAY
  4. CARVEDILOL [Concomitant]
     Indication: HYPERTENSION
     Dosage: 25 MG, 2X/DAY

REACTIONS (3)
  - Tremor [Not Recovered/Not Resolved]
  - Fatigue [Not Recovered/Not Resolved]
  - Decreased activity [Not Recovered/Not Resolved]
